FAERS Safety Report 8592419-2 (Version None)
Quarter: 2012Q3

REPORT INFORMATION
  Report Type: 
  Country: None (occurrence: None)
  Receive Date: 20120814
  Receipt Date: 20120412
  Transmission Date: 20120928
  Serious: Yes (Hospitalization, Other)
  Sender: FDA-Public Use
  Company Number: US-009507513-2012SP005035

PATIENT

DRUGS (5)
  1. RIBAVIRIN [Suspect]
     Indication: HEPATITIS C
     Dosage: UNK UNK, UNKNOWN
     Route: 065
     Dates: start: 20080208, end: 20080225
  2. PEGASYS [Suspect]
     Dosage: UNK UNK, UNKNOWN
     Route: 065
     Dates: start: 20120223
  3. PEGASYS [Suspect]
     Indication: HEPATITIS C
     Dosage: UNK UNK, UNKNOWN
     Route: 065
     Dates: start: 20080208, end: 20080225
  4. COPEGUS [Suspect]
     Indication: HEPATITIS C
     Dosage: UNK UNK, UNKNOWN
     Route: 065
     Dates: start: 20080208, end: 20080225
  5. RIBAVIRIN [Suspect]
     Dosage: UNK UNK, UNKNOWN
     Route: 065
     Dates: start: 20120223

REACTIONS (13)
  - RENAL PAIN [None]
  - COLD SWEAT [None]
  - IRRITABLE BOWEL SYNDROME [None]
  - VOMITING [None]
  - ABDOMINAL PAIN UPPER [None]
  - ASTHENIA [None]
  - DIZZINESS [None]
  - DEHYDRATION [None]
  - GAIT DISTURBANCE [None]
  - DECREASED INTEREST [None]
  - BLOOD POTASSIUM DECREASED [None]
  - FALL [None]
  - HEAD INJURY [None]
